FAERS Safety Report 7524946-0 (Version None)
Quarter: 2011Q2

REPORT INFORMATION
  Report Type: 
  Country: None (occurrence: None)
  Receive Date: 20110606
  Receipt Date: 20110524
  Transmission Date: 20111010
  Serious: Yes (Other)
  Sender: FDA-Public Use
  Company Number: FR-ELI_LILLY_AND_COMPANY-FR201105007860

PATIENT
  Age: 34 Year
  Sex: Male
  Weight: 140 kg

DRUGS (1)
  1. ZYPREXA [Suspect]
     Dosage: UNK
     Route: 048
     Dates: start: 20010101

REACTIONS (2)
  - WEIGHT INCREASED [None]
  - OBESITY [None]
